FAERS Safety Report 6934507-X (Version None)
Quarter: 2010Q3

REPORT INFORMATION
  Report Type: 
  Country: None (occurrence: None)
  Receive Date: 20100820
  Receipt Date: 20100810
  Transmission Date: 20110219
  Serious: Yes (Hospitalization)
  Sender: FDA-Public Use
  Company Number: JP-WATSON-2010-10853

PATIENT
  Age: 24 Year
  Sex: Female

DRUGS (2)
  1. PREDNISOLONE (WATSON LABORATORIES) [Suspect]
     Indication: SYSTEMIC LUPUS ERYTHEMATOSUS
     Dosage: 50 MG DAILY, TAPER TO 40 MG DAILY
     Route: 065
     Dates: start: 20040201
  2. PREDNISOLONE (WATSON LABORATORIES) [Suspect]
     Dosage: 30 MG, DAILY, TAPER TO 5 MG DAILY
     Dates: start: 19990101

REACTIONS (1)
  - CORONARY ARTERY THROMBOSIS [None]
